FAERS Safety Report 11400918 (Version 2)
Quarter: 2015Q3

REPORT INFORMATION
  Report Type: Spontaneous
  Country: US (occurrence: US)
  Receive Date: 20150820
  Receipt Date: 20150902
  Transmission Date: 20151125
  Serious: Yes (Other)
  Sender: FDA-Public Use
  Company Number: US-UCBSA-2015026252

PATIENT
  Age: 68 Year
  Sex: Male
  Weight: 104 kg

DRUGS (7)
  1. WARFARIN [Concomitant]
     Active Substance: WARFARIN
     Indication: ANTICOAGULANT THERAPY
     Dosage: 2.5 MG DAILY
  2. GABAPENTIN. [Concomitant]
     Active Substance: GABAPENTIN
     Indication: RESTLESS LEGS SYNDROME
     Dosage: 300 MG, AS NEEDED (PRN) UPTO 5 TABS
     Route: 048
  3. NEUPRO [Suspect]
     Active Substance: ROTIGOTINE
     Indication: RESTLESS LEGS SYNDROME
     Dosage: 2 MG, ONCE DAILY (QD)
     Route: 062
     Dates: start: 20150709, end: 20150813
  4. WARFARIN [Concomitant]
     Active Substance: WARFARIN
     Dosage: 18MG EVERY WEEK
     Dates: start: 201508, end: 201508
  5. WARFARIN [Concomitant]
     Active Substance: WARFARIN
     Dosage: 24MG A WEEK
     Route: 048
     Dates: start: 20150824
  6. SIMVASTATIN. [Concomitant]
     Active Substance: SIMVASTATIN
     Indication: BLOOD CHOLESTEROL
     Dosage: 40 MG, ONCE DAILY (QD)
     Route: 048
  7. FENOFIBRATE. [Concomitant]
     Active Substance: FENOFIBRATE
     Indication: BLOOD CHOLESTEROL
     Dosage: 160 MG, ONCE DAILY (QD)
     Route: 048

REACTIONS (3)
  - Off label use [Unknown]
  - International normalised ratio increased [Recovered/Resolved]
  - Wrong technique in product usage process [Unknown]

NARRATIVE: CASE EVENT DATE: 20150709
